FAERS Safety Report 9503456 (Version 1)
Quarter: 2013Q1

REPORT INFORMATION
  Report Type: Spontaneous
  Country: US (occurrence: None)
  Receive Date: 20130130
  Receipt Date: 20130130
  Transmission Date: 20140127
  Serious: Yes (Other)
  Sender: FDA-Public Use
  Company Number: US0201210000197

PATIENT
  Sex: Female
  Weight: 81.6 kg

DRUGS (2)
  1. BYDUREON [Suspect]
     Indication: TYPE 1 DIABETES MELLITUS
     Dosage: VIAL + SYRINGE
     Dates: start: 20120914
  2. BYETTA [Suspect]
     Route: 058
     Dates: start: 20120914

REACTIONS (9)
  - Headache [None]
  - Increased appetite [None]
  - Sleep disorder [None]
  - Eating disorder [None]
  - Blood glucose increased [None]
  - Weight decreased [None]
  - Glycosylated haemoglobin increased [None]
  - Nausea [None]
  - Injection site pain [None]
